FAERS Safety Report 15905744 (Version 1)
Quarter: 2019Q1

REPORT INFORMATION
  Report Type: Spontaneous
  Country: US (occurrence: US)
  Receive Date: 20190204
  Receipt Date: 20190204
  Transmission Date: 20190417
  Serious: Yes (Other)
  Sender: FDA-Public Use
  Company Number: US-CROSSMEDIKA SA-2062114

PATIENT
  Age: 66 Year
  Sex: Female

DRUGS (12)
  1. FILGRASTIM [Concomitant]
     Active Substance: FILGRASTIM
     Route: 058
  2. RIFAMPIN. [Concomitant]
     Active Substance: RIFAMPIN
  3. MOXIFLOXACIN HYDROCHLORIDE. [Suspect]
     Active Substance: MOXIFLOXACIN HYDROCHLORIDE
     Indication: MYCOBACTERIUM AVIUM COMPLEX INFECTION
  4. AZITHROMYCIN ANHYDROUS. [Suspect]
     Active Substance: AZITHROMYCIN ANHYDROUS
  5. ETHAMBUTOL [Concomitant]
     Active Substance: ETHAMBUTOL HYDROCHLORIDE
  6. ATORVASTATIN [Concomitant]
     Active Substance: ATORVASTATIN
  7. TACROLIMUS. [Concomitant]
     Active Substance: TACROLIMUS
  8. INSULIN ASPART [Concomitant]
     Active Substance: INSULIN ASPART
     Route: 058
  9. PENTAMIDINE [Concomitant]
     Active Substance: PENTAMIDINE
     Route: 055
  10. PREDNISONE. [Concomitant]
     Active Substance: PREDNISONE
  11. ACETYLCYSTEINE. [Concomitant]
     Active Substance: ACETYLCYSTEINE
  12. LEVEMIR [Concomitant]
     Active Substance: INSULIN DETEMIR
     Route: 058

REACTIONS (6)
  - Diarrhoea [Recovering/Resolving]
  - Nausea [Unknown]
  - Weight decreased [Unknown]
  - Visual impairment [Recovering/Resolving]
  - Decreased appetite [Unknown]
  - Optic neuritis [Unknown]
